FAERS Safety Report 23091971 (Version 1)
Quarter: 2023Q4

REPORT INFORMATION
  Report Type: Spontaneous
  Country: US (occurrence: US)
  Receive Date: 20231021
  Receipt Date: 20231021
  Transmission Date: 20240110
  Serious: No
  Sender: FDA-Public Use
  Company Number: US-JNJFOC-20231018777

PATIENT
  Age: 67 Year
  Sex: Female

DRUGS (2)
  1. SUDAFED PE DAY PLUS NIGHT SINUS CONGESTION [Suspect]
     Active Substance: DIPHENHYDRAMINE HYDROCHLORIDE\PHENYLEPHRINE HYDROCHLORIDE
     Indication: Suspected COVID-19
     Route: 065
     Dates: start: 20230907
  2. SUDAFED [Suspect]
     Active Substance: PSEUDOEPHEDRINE HYDROCHLORIDE
     Indication: Suspected COVID-19
     Route: 065
     Dates: start: 202309

REACTIONS (2)
  - Off label use [Unknown]
  - Therapeutic response unexpected [Unknown]
